FAERS Safety Report 7650012-X (Version None)
Quarter: 2011Q3

REPORT INFORMATION
  Report Type: 
  Country: None (occurrence: None)
  Receive Date: 20110802
  Receipt Date: 20110728
  Transmission Date: 20111222
  Serious: Yes (Death, Other)
  Sender: FDA-Public Use
  Company Number: US-SANOFI-AVENTIS-2011SA032260

PATIENT
  Age: 64 Year
  Sex: Male
  Weight: 84.8 kg

DRUGS (10)
  1. INVESTIGATIONAL DRUG [Suspect]
     Dosage: CYCLE 14 DAYS
     Route: 048
     Dates: start: 20110331, end: 20110506
  2. ENOXAPARIN [Concomitant]
  3. FLUOROURACIL [Suspect]
     Dosage: IV FLUOROURACIL PUSH FOLLOWED BY IV FLUOROURACIL 400 MG/M2 OVER 46-48 HOURS ON DAYS 1 AND 2
     Route: 042
     Dates: start: 20110331
  4. LEUCOVORIN CALCIUM [Suspect]
     Dosage: OVER 2 HOURS ON DAY 1
     Route: 042
     Dates: start: 20110331
  5. FLUOROURACIL [Suspect]
     Dosage: IV FLUOROURACIL PUSH FOLLOWED BY IV FLUOROURACIL 400 MG/M2 OVER 46-48 HOURS ON DAYS 1 AND 2
     Route: 042
     Dates: start: 20110504, end: 20110506
  6. OXALIPLATIN [Suspect]
     Dosage: OVER 2 HOURS ON DAY 1
     Route: 042
     Dates: start: 20110331
  7. LEUCOVORIN CALCIUM [Suspect]
     Dosage: OVER 2 HOURS ON DAY 1
     Route: 042
     Dates: start: 20110504, end: 20110504
  8. OXALIPLATIN [Suspect]
     Dosage: OVER 2 HOURS ON DAY 1
     Route: 042
     Dates: start: 20110504, end: 20110504
  9. DILAUDID [Concomitant]
  10. PLAVIX [Concomitant]

REACTIONS (2)
  - DEATH [None]
  - EMBOLISM [None]
